FAERS Safety Report 16649257 (Version 1)
Quarter: 2019Q3

REPORT INFORMATION
  Report Type: Spontaneous
  Country: US (occurrence: US)
  Receive Date: 20190730
  Receipt Date: 20190730
  Transmission Date: 20191004
  Serious: No
  Sender: FDA-Public Use
  Company Number: PHEH2019US031241

PATIENT
  Sex: Female

DRUGS (1)
  1. GLATIRAMER [Suspect]
     Active Substance: GLATIRAMER
     Indication: MULTIPLE SCLEROSIS
     Dosage: 40 MG, Q3W
     Route: 058

REACTIONS (6)
  - Pain in extremity [Unknown]
  - Memory impairment [Unknown]
  - Fatigue [Unknown]
  - Injection site pain [Unknown]
  - Injection site pruritus [Unknown]
  - Feeling hot [Unknown]
